FAERS Safety Report 7562664-3 (Version None)
Quarter: 2011Q2

REPORT INFORMATION
  Report Type: 
  Country: None (occurrence: None)
  Receive Date: 20110622
  Receipt Date: 20110613
  Transmission Date: 20111010
  Serious: Yes (Hospitalization, Other)
  Sender: FDA-Public Use
  Company Number: US-BRISTOL-MYERS SQUIBB COMPANY-14918262

PATIENT
  Age: 63 Year
  Sex: Female

DRUGS (38)
  1. CYANOCOBALAMIN [Concomitant]
  2. HEPARIN SODIUM [Concomitant]
     Dates: start: 20091228, end: 20100103
  3. TYLENOL-500 [Concomitant]
     Dates: start: 20090807
  4. DIGOXIN [Concomitant]
     Route: 048
  5. NICOTINE [Concomitant]
     Indication: TOBACCO USER
     Dosage: 1DF-1 PATCH NICOTINE 21MG/24HR PATCH APPLY ONE PATCH TO CLEAM DRY SKIN DAILY  PACTH AND LOZENG
     Route: 062
     Dates: start: 20091228, end: 20100103
  6. SENNOSIDE [Concomitant]
     Dates: start: 20091230, end: 20100103
  7. SIMVASTATIN [Concomitant]
     Dates: start: 20091231
  8. AMOXICILLIN [Concomitant]
     Dates: start: 20100102, end: 20100109
  9. ERGOCALCIFEROL [Concomitant]
     Dates: start: 20100103, end: 20100202
  10. FENTANYL CITRATE [Concomitant]
     Dates: start: 20091228, end: 20091230
  11. COMBIVENT [Concomitant]
     Dosage: 31MAR10
     Route: 055
     Dates: start: 20091229, end: 20100103
  12. DOCUSATE SODIUM [Concomitant]
     Dates: start: 20091230, end: 20100103
  13. ASPIRIN [Concomitant]
     Dosage: 162MG 30DEC09-6FEB10 81MG 12APR10-30APR10
     Dates: start: 20091230, end: 20100430
  14. WARFARIN SODIUM [Suspect]
     Indication: THROMBOSIS PROPHYLAXIS
     Dosage: INTERRUPTED ON 28DEC2009 RESTARTED ON 26FEB2010.
     Route: 048
     Dates: start: 20090806
  15. PLACEBO [Suspect]
     Indication: THROMBOSIS PROPHYLAXIS
     Dosage: INTERRUPTED ON 28DEC2009 RESTARTED ON 26FEB2010.
     Route: 048
     Dates: start: 20090806
  16. ATENOLOL [Concomitant]
     Dates: end: 20100819
  17. AZITHROMYCIN [Concomitant]
     Dates: start: 20091228, end: 20091231
  18. MOXIFLOXACIN [Concomitant]
     Dates: start: 20091230, end: 20100102
  19. CEFEPIME [Concomitant]
     Route: 042
     Dates: start: 20091229, end: 20100102
  20. OMEPRAZOLE [Concomitant]
     Dates: start: 20090101
  21. MIDAZOLAM HCL [Concomitant]
     Dates: start: 20091228, end: 20091230
  22. OSELTAMIVIR PHOSPHATE [Concomitant]
     Dosage: CAPS
     Dates: start: 20091229, end: 20091230
  23. HYDROCHLOROTHIAZIDE [Concomitant]
     Dosage: ALSO TAKEN AS CAPS: 1JAN10-03JAN10 03JAN10-5JAN10
     Dates: start: 20100101, end: 20100105
  24. INSULIN ASPART [Concomitant]
     Dates: start: 20091228, end: 20100102
  25. ACETAMINOPHEN [Concomitant]
     Indication: PAIN
     Dosage: ACETAMINOPHEN 500MG TABS 1DF-1 TAB
     Route: 048
  26. CALCIUM + VITAMIN D [Concomitant]
     Route: 048
  27. HYDROCORTISONE [Concomitant]
     Dosage: FORMULATION: INJ
     Dates: start: 20091228, end: 20100102
  28. DIVALPROEX SODIUM [Concomitant]
     Dosage: 3 TABS AT BED TIME
     Route: 048
  29. VANCOMYCIN [Concomitant]
     Dates: start: 20091228, end: 20091230
  30. LEVALBUTEROL HCL [Concomitant]
     Dosage: LEVALBUTEROL  NEBULIZER
     Dates: start: 20091228, end: 20091229
  31. VANICREAM [Concomitant]
     Route: 061
  32. POTASSIUM CHLORIDE [Concomitant]
     Dosage: 29DEC90 07JAN-6FEB10
     Route: 042
     Dates: start: 20091229, end: 20100206
  33. IPRATROPIUM BROMIDE [Concomitant]
     Dosage: IPRATROPIUM NEBULIZER
     Dates: start: 20091228, end: 20091229
  34. PHYTONADIONE [Concomitant]
     Dosage: INJ AND TAB
     Dates: start: 20091228, end: 20100103
  35. AMLODIPINE [Concomitant]
     Dates: start: 20100305, end: 20100515
  36. FAMOTIDINE [Concomitant]
     Dates: start: 20091230, end: 20091231
  37. FLUCONAZOLE [Concomitant]
     Dates: start: 20100103, end: 20100419
  38. RINGERS SOLUTION, LACTATED [Concomitant]
     Dates: start: 20091229, end: 20091230

REACTIONS (4)
  - FLUID OVERLOAD [None]
  - ANAEMIA [None]
  - LOBAR PNEUMONIA [None]
  - THROMBOCYTOPENIA [None]
